FAERS Safety Report 15624111 (Version 1)
Quarter: 2018Q4

REPORT INFORMATION
  Report Type: Report from Study
  Country: None (occurrence: BR)
  Receive Date: 20181116
  Receipt Date: 20181116
  Transmission Date: 20190205
  Serious: Yes (Hospitalization, Disabling, Other)
  Sender: FDA-Public Use
  Company Number: BR-ABBVIE-18K-020-2553598-00

PATIENT
  Age: 36 Year
  Sex: Female
  Weight: 40 kg

DRUGS (4)
  1. HUMIRA [Suspect]
     Active Substance: ADALIMUMAB
     Indication: CROHN^S DISEASE
     Dosage: LOADING DOSE
     Route: 058
  2. CODEINE [Concomitant]
     Active Substance: CODEINE
     Indication: PAIN
     Dosage: EVERY 6 HOURS
  3. HUMIRA [Suspect]
     Active Substance: ADALIMUMAB
     Route: 058
     Dates: start: 20180926
  4. HUMIRA [Suspect]
     Active Substance: ADALIMUMAB
     Dosage: MAINTENANCE DOSE
     Route: 058

REACTIONS (20)
  - Skin hyperpigmentation [Recovering/Resolving]
  - Coma [Recovered/Resolved]
  - Diplegia [Recovered/Resolved]
  - Weight decreased [Recovering/Resolving]
  - Medical induction of coma [Recovered/Resolved]
  - Abdominal pain upper [Unknown]
  - Muscular weakness [Unknown]
  - Motor dysfunction [Unknown]
  - Pneumonia [Recovered/Resolved]
  - Peripheral nerve injury [Unknown]
  - Limb asymmetry [Unknown]
  - Alopecia [Not Recovered/Not Resolved]
  - Intestinal ulcer [Unknown]
  - Pain [Recovered/Resolved]
  - Gait inability [Unknown]
  - Infection [Recovered/Resolved]
  - Hepatic lesion [Unknown]
  - Gastric ulcer [Recovering/Resolving]
  - Klebsiella infection [Recovered/Resolved]
  - Abdominal pain [Unknown]

NARRATIVE: CASE EVENT DATE: 20180611
